FAERS Safety Report 7573716-6 (Version None)
Quarter: 2011Q2

REPORT INFORMATION
  Report Type: 
  Country: None (occurrence: None)
  Receive Date: 20110627
  Receipt Date: 20110613
  Transmission Date: 20111010
  Serious: Yes (Other)
  Sender: FDA-Public Use
  Company Number: US-ROCHE-782551

PATIENT

DRUGS (1)
  1. PEGINTERFERON ALFA-2A [Suspect]
     Route: 065

REACTIONS (1)
  - SKIN HYPERPIGMENTATION [None]
